FAERS Safety Report 6090333-8 (Version None)
Quarter: 2009Q1

REPORT INFORMATION
  Report Type: 
  Country: None (occurrence: None)
  Receive Date: 20090224
  Receipt Date: 20081221
  Transmission Date: 20090719
  Serious: No
  Sender: FDA-Public Use
  Company Number: US-ABBOTT-08P-163-0494375-00

PATIENT
  Sex: Male

DRUGS (6)
  1. SIMCOR [Suspect]
     Indication: DRUG USE FOR UNKNOWN INDICATION
     Dosage: 500MG/20MG
     Dates: start: 20081211
  2. LEXAPRO [Suspect]
     Indication: DRUG USE FOR UNKNOWN INDICATION
  3. XANAX [Concomitant]
     Indication: DRUG USE FOR UNKNOWN INDICATION
  4. ALLEGRA [Concomitant]
     Indication: DRUG USE FOR UNKNOWN INDICATION
  5. ALLERGY SHOT [Concomitant]
     Indication: DRUG USE FOR UNKNOWN INDICATION
  6. ASPIRIN [Concomitant]
     Indication: DRUG USE FOR UNKNOWN INDICATION
     Dosage: AT TIMES

REACTIONS (8)
  - AGITATION [None]
  - DIZZINESS [None]
  - FLUSHING [None]
  - MUSCLE SPASMS [None]
  - MUSCLE TWITCHING [None]
  - NIGHT SWEATS [None]
  - PARAESTHESIA [None]
  - TENSION [None]
